FAERS Safety Report 20559933 (Version 4)
Quarter: 2022Q1

REPORT INFORMATION
  Report Type: Spontaneous
  Country: US (occurrence: US)
  Receive Date: 20220307
  Receipt Date: 20220324
  Transmission Date: 20220424
  Serious: No
  Sender: FDA-Public Use
  Company Number: US-NOVARTISPH-NVSC2022US050911

PATIENT
  Age: 76 Year
  Sex: Female

DRUGS (9)
  1. AZOPT [Suspect]
     Active Substance: BRINZOLAMIDE
     Indication: Glaucoma
     Dosage: 10, BID (10MG/ML)(ROUTE: 1 GTT)
     Route: 065
     Dates: start: 20150712
  2. LATANOPROST [Concomitant]
     Active Substance: LATANOPROST
     Indication: Product used for unknown indication
     Dosage: UNK (AT NIGHT)
     Route: 065
  3. TIMOLOL [Concomitant]
     Active Substance: TIMOLOL
     Indication: Product used for unknown indication
     Dosage: 1 DRP, BID
     Route: 065
  4. ALENDRONATE SODIUM [Concomitant]
     Active Substance: ALENDRONATE SODIUM
     Indication: Product used for unknown indication
     Dosage: 70 MG, QW
     Route: 065
  5. ROSUVASTATIN CALCIUM [Concomitant]
     Active Substance: ROSUVASTATIN CALCIUM
     Indication: Product used for unknown indication
     Dosage: 10 MG, QD
     Route: 065
  6. METFORMIN HYDROCHLORIDE [Concomitant]
     Active Substance: METFORMIN HYDROCHLORIDE
     Indication: Product used for unknown indication
     Dosage: 500 MG, BID
     Route: 065
  7. TELMISARTAN [Concomitant]
     Active Substance: TELMISARTAN
     Indication: Product used for unknown indication
     Dosage: 80 MG, QD
     Route: 065
  8. BAYER LOW DOSE [Concomitant]
     Active Substance: ASPIRIN
     Indication: Product used for unknown indication
     Dosage: UNK UNK, QD (LOW DOSE)
     Route: 065
  9. VITAMIN D [Concomitant]
     Active Substance: VITAMIN D NOS
     Indication: Product used for unknown indication
     Dosage: UNK, QD
     Route: 065

REACTIONS (4)
  - Foreign body sensation in eyes [Unknown]
  - Eye irritation [Recovered/Resolved]
  - Product container issue [Unknown]
  - Eye discharge [Unknown]

NARRATIVE: CASE EVENT DATE: 20220306
